FAERS Safety Report 19028368 (Version 1)
Quarter: 2021Q1

REPORT INFORMATION
  Report Type: Report from Study
  Country: FR (occurrence: FR)
  Receive Date: 20210318
  Receipt Date: 20210318
  Transmission Date: 20210420
  Serious: Yes (Hospitalization)
  Sender: FDA-Public Use
  Company Number: FR-SHIRE-FR202024357

PATIENT
  Age: 65 Year

DRUGS (71)
  1. IMODIUM [Concomitant]
     Active Substance: LOPERAMIDE HYDROCHLORIDE
     Indication: SHORT-BOWEL SYNDROME
  2. AZINC [Concomitant]
     Indication: SUPPLEMENTATION THERAPY
  3. MOTILIUM [Concomitant]
     Active Substance: DOMPERIDONE
     Indication: NAUSEA
  4. PREVISCAN [FLUINDIONE] [Concomitant]
     Active Substance: FLUINDIONE
     Indication: JUGULAR VEIN THROMBOSIS
  5. LASILIX [FUROSEMIDE] [Concomitant]
     Active Substance: FUROSEMIDE
     Indication: RESPIRATORY DISTRESS
  6. NUTRYELT [Concomitant]
     Active Substance: IRON\MINERALS\POTASSIUM IOD\SODIUM FLUORIDE\SODIUM MOLYBDATE\SODIUM SELENITE\ZINC
     Indication: SUPPLEMENTATION THERAPY
  7. COUMADINE [Concomitant]
     Active Substance: WARFARIN SODIUM
     Indication: THROMBOSIS
  8. TEDUGLUTIDE [Suspect]
     Active Substance: TEDUGLUTIDE
     Dosage: 1.6 MILLIGRAM (TED DAILY DOSES 0.05 MG/KG)
     Route: 065
     Dates: start: 20171130, end: 20171209
  9. TEDUGLUTIDE [Suspect]
     Active Substance: TEDUGLUTIDE
     Dosage: 1.6 MILLIGRAM (TED DAILY DOSES 0.05 MG/KG)
     Route: 065
     Dates: start: 20171209, end: 20180103
  10. TEDUGLUTIDE [Suspect]
     Active Substance: TEDUGLUTIDE
     Dosage: 1.6 MILLIGRAM (TED DAILY DOSES 0.05 MG/KG)
     Route: 065
     Dates: start: 20171209, end: 20180103
  11. TEDUGLUTIDE [Suspect]
     Active Substance: TEDUGLUTIDE
     Dosage: 1.6 MILLIGRAM (TED DAILY DOSES 0.05 MG/KG)
     Route: 065
     Dates: start: 20171209, end: 20180103
  12. CONTRAMAL [Concomitant]
     Active Substance: TRAMADOL HYDROCHLORIDE
     Indication: ARTHRALGIA
  13. POTASSIUM [Concomitant]
     Active Substance: POTASSIUM
     Indication: SUPPLEMENTATION THERAPY
  14. OGAST [Concomitant]
     Active Substance: LANSOPRAZOLE
     Indication: NAUSEA
  15. BACTRIM [Concomitant]
     Active Substance: SULFAMETHOXAZOLE\TRIMETHOPRIM
     Indication: PNEUMONIA
  16. TEDUGLUTIDE [Suspect]
     Active Substance: TEDUGLUTIDE
     Indication: SHORT-BOWEL SYNDROME
     Dosage: 2 MILLIGRAM (TED DAILY DOSES 0.05 MG/KG)
     Route: 065
     Dates: start: 20160322, end: 20160920
  17. DAFALGAN [Concomitant]
     Active Substance: ACETAMINOPHEN
     Indication: ARTHRALGIA
  18. MODULEN IBD [Concomitant]
     Active Substance: CARBOHYDRATES\FATTY ACIDS\MINERALS\PROTEIN\VITAMINS
     Indication: SUPPLEMENTATION THERAPY
  19. ROCEPHINE [Concomitant]
     Active Substance: CEFTRIAXONE SODIUM
     Indication: CYSTITIS
  20. VITAMIN K [Concomitant]
     Active Substance: PHYTONADIONE
     Indication: SUPPLEMENTATION THERAPY
  21. ADIARIL [Concomitant]
     Indication: FLUID REPLACEMENT
  22. MAGNESIUM CITRATE. [Concomitant]
     Active Substance: MAGNESIUM CITRATE
     Indication: SUPPLEMENTATION THERAPY
  23. TEDUGLUTIDE [Suspect]
     Active Substance: TEDUGLUTIDE
     Indication: SHORT-BOWEL SYNDROME
     Dosage: 2 MILLIGRAM (TED DAILY DOSES 0.05 MG/KG)
     Route: 065
     Dates: start: 20160322, end: 20160920
  24. TEDUGLUTIDE [Suspect]
     Active Substance: TEDUGLUTIDE
     Dosage: 1.8 MILLIGRAM (TED DAILY DOSE 0.05 MG/KG)
     Route: 065
     Dates: start: 20160920, end: 20171130
  25. TEDUGLUTIDE [Suspect]
     Active Substance: TEDUGLUTIDE
     Dosage: 1.6 MILLIGRAM (TED DAILY DOSES 0.05 MG/KG)
     Route: 065
     Dates: start: 20180103
  26. ESOMEPRAZOLE. [Concomitant]
     Active Substance: ESOMEPRAZOLE MAGNESIUM
     Indication: SHORT-BOWEL SYNDROME
  27. CACIT [CALCIUM CARBONATE] [Concomitant]
     Active Substance: CALCIUM CARBONATE
     Indication: OSTEOPOROSIS
  28. VANCOMYCINE [VANCOMYCIN] [Concomitant]
     Active Substance: VANCOMYCIN
     Indication: DEVICE RELATED INFECTION
  29. PROTELOS [Concomitant]
     Active Substance: STRONTIUM RANELATE
     Indication: OSTEOPOROSIS
  30. OFLOCET [OFLOXACIN] [Concomitant]
     Active Substance: OFLOXACIN
     Indication: INFECTION
  31. LOVENOX [LEVOFLOXACIN] [Concomitant]
     Active Substance: LEVOFLOXACIN
     Indication: JUGULAR VEIN THROMBOSIS
  32. MAGNE B6 [Concomitant]
     Active Substance: MAGNESIUM\PYRIDOXINE
     Indication: SUPPLEMENTATION THERAPY
  33. PICOLITE [Concomitant]
     Indication: FLUID REPLACEMENT
  34. INNOHEP [Concomitant]
     Active Substance: TINZAPARIN SODIUM
     Indication: JUGULAR VEIN THROMBOSIS
  35. REANUTRIFLEX LIPIDE G 144/N 8/E [Concomitant]
     Active Substance: AMINO ACIDS\DEXTROSE\ELECTROLYTES NOS\SOYBEAN OIL
     Indication: SUPPLEMENTATION THERAPY
  36. TEDUGLUTIDE [Suspect]
     Active Substance: TEDUGLUTIDE
     Indication: SHORT-BOWEL SYNDROME
     Dosage: 2 MILLIGRAM (TED DAILY DOSES 0.05 MG/KG)
     Route: 065
     Dates: start: 20160322, end: 20160920
  37. TEDUGLUTIDE [Suspect]
     Active Substance: TEDUGLUTIDE
     Dosage: 1.8 MILLIGRAM (TED DAILY DOSE 0.05 MG/KG)
     Route: 065
     Dates: start: 20160920, end: 20171130
  38. TEDUGLUTIDE [Suspect]
     Active Substance: TEDUGLUTIDE
     Dosage: 1.6 MILLIGRAM (TED DAILY DOSES 0.05 MG/KG)
     Route: 065
     Dates: start: 20171130, end: 20171209
  39. TEDUGLUTIDE [Suspect]
     Active Substance: TEDUGLUTIDE
     Dosage: 1.6 MILLIGRAM (TED DAILY DOSES 0.05 MG/KG)
     Route: 065
     Dates: start: 20180103
  40. TARDYFERON [Concomitant]
     Active Substance: FERROUS SULFATE
     Indication: SUPPLEMENTATION THERAPY
  41. BICARBONATE SODIUM [Concomitant]
     Active Substance: SODIUM BICARBONATE
     Indication: SUPPLEMENTATION THERAPY
  42. CALCIDOSE VITAMINE D [Concomitant]
     Active Substance: CALCIUM\CHOLECALCIFEROL
     Indication: SUPPLEMENTATION THERAPY
  43. PHOSPHORUS [Concomitant]
     Active Substance: PHOSPHORUS
     Indication: SUPPLEMENTATION THERAPY
  44. ROVAMYCINE [SPIRAMYCIN] [Concomitant]
     Active Substance: SPIRAMYCIN
     Indication: PNEUMONIA
  45. TEDUGLUTIDE [Suspect]
     Active Substance: TEDUGLUTIDE
     Dosage: 1.6 MILLIGRAM (TED DAILY DOSES 0.05 MG/KG)
     Route: 065
     Dates: start: 20171130, end: 20171209
  46. TEDUGLUTIDE [Suspect]
     Active Substance: TEDUGLUTIDE
     Dosage: 1.6 MILLIGRAM (TED DAILY DOSES 0.05 MG/KG)
     Route: 065
     Dates: start: 20171209, end: 20180103
  47. ACLASTA [Concomitant]
     Active Substance: ZOLEDRONIC ACID
     Indication: OSTEOPOROSIS
  48. ACUPAN [Concomitant]
     Active Substance: NEFOPAM HYDROCHLORIDE
     Indication: ARTHRALGIA
  49. TOPALGIC [SUPROFEN] [Concomitant]
     Active Substance: SUPROFEN
     Indication: ARTHRALGIA
  50. ACTONEL [Concomitant]
     Active Substance: RISEDRONATE SODIUM
     Indication: OSTEOPOROSIS
  51. CERNEVIT [Concomitant]
     Active Substance: VITAMINS
     Indication: SUPPLEMENTATION THERAPY
  52. NICOPATCH [Concomitant]
     Active Substance: NICOTINE
     Indication: PASSIVE SMOKING
  53. TEDUGLUTIDE [Suspect]
     Active Substance: TEDUGLUTIDE
     Dosage: 1.8 MILLIGRAM (TED DAILY DOSE 0.05 MG/KG)
     Route: 065
     Dates: start: 20160920, end: 20171130
  54. TEDUGLUTIDE [Suspect]
     Active Substance: TEDUGLUTIDE
     Dosage: 1.6 MILLIGRAM (TED DAILY DOSES 0.05 MG/KG)
     Route: 065
     Dates: start: 20171130, end: 20171209
  55. VITAMIN D [COLECALCIFEROL] [Concomitant]
     Active Substance: CHOLECALCIFEROL
     Indication: OSTEOPOROSIS
  56. MAG 2 [MAGNESIUM CARBONATE] [Concomitant]
     Active Substance: MAGNESIUM CARBONATE
     Indication: SUPPLEMENTATION THERAPY
  57. GENTAMYCINE [GENTAMICIN] [Concomitant]
     Active Substance: GENTAMICIN
     Indication: DEVICE RELATED INFECTION
  58. DIFFU K [Concomitant]
     Active Substance: POTASSIUM CHLORIDE
     Indication: SUPPLEMENTATION THERAPY
  59. DAFALGAN CODEINE [Concomitant]
     Active Substance: ACETAMINOPHEN\CODEINE PHOSPHATE
     Indication: DIARRHOEA
  60. UVEDOSE [Concomitant]
     Active Substance: CHOLECALCIFEROL
     Indication: OSTEOPOROSIS
  61. PIPERACILLINE [PIPERACILLIN] [Concomitant]
     Active Substance: PIPERACILLIN
     Indication: DEVICE RELATED INFECTION
  62. AMIKLIN [AMIKACIN] [Concomitant]
     Indication: DEVICE RELATED INFECTION
  63. EUPANTOL [Concomitant]
     Active Substance: PANTOPRAZOLE SODIUM
     Indication: GASTROOESOPHAGEAL REFLUX DISEASE
  64. TEDUGLUTIDE [Suspect]
     Active Substance: TEDUGLUTIDE
     Indication: SHORT-BOWEL SYNDROME
     Dosage: 2 MILLIGRAM (TED DAILY DOSES 0.05 MG/KG)
     Route: 065
     Dates: start: 20160322, end: 20160920
  65. TEDUGLUTIDE [Suspect]
     Active Substance: TEDUGLUTIDE
     Dosage: 1.8 MILLIGRAM (TED DAILY DOSE 0.05 MG/KG)
     Route: 065
     Dates: start: 20160920, end: 20171130
  66. TEDUGLUTIDE [Suspect]
     Active Substance: TEDUGLUTIDE
     Dosage: 1.6 MILLIGRAM (TED DAILY DOSES 0.05 MG/KG)
     Route: 065
     Dates: start: 20180103
  67. TEDUGLUTIDE [Suspect]
     Active Substance: TEDUGLUTIDE
     Dosage: 1.6 MILLIGRAM (TED DAILY DOSES 0.05 MG/KG)
     Route: 065
     Dates: start: 20180103
  68. RIFAMPICINE [Concomitant]
     Active Substance: RIFAMPIN
     Indication: DEVICE RELATED INFECTION
  69. AUGMENTIN [Concomitant]
     Active Substance: AMOXICILLIN\CLAVULANATE POTASSIUM
     Indication: JOINT ABSCESS
  70. LOVENOX [LEVOFLOXACIN] [Concomitant]
     Active Substance: LEVOFLOXACIN
     Indication: PROPHYLAXIS
  71. TAZOCILLINE [Concomitant]
     Active Substance: PIPERACILLIN SODIUM\TAZOBACTAM SODIUM
     Indication: PNEUMONIA

REACTIONS (1)
  - Device malfunction [Recovered/Resolved]

NARRATIVE: CASE EVENT DATE: 20160713
